FAERS Safety Report 12559603 (Version 4)
Quarter: 2016Q3

REPORT INFORMATION
  Report Type: Spontaneous
  Country: IL (occurrence: IL)
  Receive Date: 20160715
  Receipt Date: 20160829
  Transmission Date: 20161109
  Serious: Yes (Hospitalization, Other)
  Sender: FDA-Public Use
  Company Number: IL-AMGEN-ISRSP2016091142

PATIENT
  Age: 52 Year
  Sex: Male

DRUGS (1)
  1. NEUPOGEN [Suspect]
     Active Substance: FILGRASTIM
     Indication: STEM CELL DONOR
     Dosage: UNK
     Route: 065
     Dates: start: 2008

REACTIONS (10)
  - Back pain [Unknown]
  - Gastrointestinal angiodysplasia [Unknown]
  - Anaemia [Unknown]
  - Duodenitis [Unknown]
  - Constipation [Unknown]
  - Aortitis [Unknown]
  - Weight decreased [Unknown]
  - Gastritis [Unknown]
  - Proctitis [Unknown]
  - Peripheral artery aneurysm [Unknown]

NARRATIVE: CASE EVENT DATE: 2008
